FAERS Safety Report 22628669 (Version 1)
Quarter: 2023Q2

REPORT INFORMATION
  Report Type: Spontaneous
  Country: US (occurrence: US)
  Receive Date: 20230622
  Receipt Date: 20230622
  Transmission Date: 20230722
  Serious: No
  Sender: FDA-Public Use
  Company Number: US-009507513-2305USA008412

PATIENT
  Age: 62 Year
  Sex: Female

DRUGS (4)
  1. INVANZ [Suspect]
     Active Substance: ERTAPENEM SODIUM
     Indication: Fusobacterium infection
  2. INVANZ [Suspect]
     Active Substance: ERTAPENEM SODIUM
     Indication: Liver abscess
  3. APIXABAN [Concomitant]
     Active Substance: APIXABAN
     Indication: Fusobacterium infection
  4. APIXABAN [Concomitant]
     Active Substance: APIXABAN
     Indication: Liver abscess

REACTIONS (1)
  - Product use in unapproved indication [Unknown]
